FAERS Safety Report 17065397 (Version 1)
Quarter: 2019Q4

REPORT INFORMATION
  Report Type: Spontaneous
  Country: US (occurrence: US)
  Receive Date: 20191024
  Receipt Date: 20191024
  Transmission Date: 20200122
  Serious: No
  Sender: FDA-Public Use
  Company Number: None

PATIENT

DRUGS (4)
  1. DOPAMINE HCL 200 MG PER 250 ML [Suspect]
     Active Substance: DOPAMINE HYDROCHLORIDE
     Dosage: ?          OTHER ROUTE:IV BAG?
  2. DOBUTAMINE HCL 250MG PER 250 ML [Suspect]
     Active Substance: DOBUTAMINE HYDROCHLORIDE
     Dosage: ?          OTHER ROUTE:IV BAG?
  3. D OBUTAMINE HCL 1,000 MG PER 250 ML [Suspect]
     Active Substance: DOBUTAMINE HYDROCHLORIDE
     Dosage: ?          OTHER ROUTE:IV BAG?
  4. DOPAMIN E HCL 800 MG PER 250ML [Suspect]
     Active Substance: DOPAMINE HYDROCHLORIDE
     Dosage: ?          OTHER ROUTE:IV BAG?

REACTIONS (4)
  - Product dispensing error [None]
  - Product appearance confusion [None]
  - Product packaging confusion [None]
  - Wrong product stored [None]
